FAERS Safety Report 20414205 (Version 1)
Quarter: 2022Q1

REPORT INFORMATION
  Report Type: Report from Study
  Country: CA (occurrence: CA)
  Receive Date: 20220201
  Receipt Date: 20220201
  Transmission Date: 20220424
  Serious: Yes (Hospitalization, Other)
  Sender: FDA-Public Use
  Company Number: CA-ABBVIE-22K-028-4259384-00

PATIENT
  Age: 79 Year
  Sex: Female

DRUGS (1)
  1. HUMIRA [Suspect]
     Active Substance: ADALIMUMAB
     Indication: Rheumatoid arthritis
     Route: 058
     Dates: start: 20190117

REACTIONS (12)
  - Bladder prolapse [Unknown]
  - Transient ischaemic attack [Recovered/Resolved]
  - Cardiac murmur [Unknown]
  - Blood thyroid stimulating hormone abnormal [Unknown]
  - Thyroid disorder [Unknown]
  - Pain in extremity [Unknown]
  - Haemorrhoids [Unknown]
  - Rheumatoid arthritis [Unknown]
  - Peripheral swelling [Unknown]
  - Pain [Unknown]
  - Insomnia [Unknown]
  - Hepatic enzyme increased [Unknown]

NARRATIVE: CASE EVENT DATE: 20201201
